FAERS Safety Report 22351591 (Version 5)
Quarter: 2025Q1

REPORT INFORMATION
  Report Type: Report from Study
  Country: US (occurrence: US)
  Receive Date: 20230522
  Receipt Date: 20250204
  Transmission Date: 20250409
  Serious: Yes (Other)
  Sender: TAKEDA
  Company Number: US-TAKEDA-2022TUS076622

PATIENT
  Age: 75 Year
  Sex: Female
  Weight: 44 kg

DRUGS (1)
  1. VEDOLIZUMAB [Suspect]
     Active Substance: VEDOLIZUMAB
     Indication: Crohn^s disease

REACTIONS (6)
  - Cerebrovascular accident [Unknown]
  - Confusional state [Unknown]
  - Memory impairment [Unknown]
  - Product dose omission issue [Unknown]
  - Fall [Unknown]
  - Inappropriate schedule of product administration [Unknown]

NARRATIVE: CASE EVENT DATE: 20230417
